FAERS Safety Report 14478257 (Version 1)
Quarter: 2018Q1

REPORT INFORMATION
  Report Type: Spontaneous
  Country: US (occurrence: US)
  Receive Date: 20180202
  Receipt Date: 20180202
  Transmission Date: 20180509
  Serious: Yes (Other)
  Sender: FDA-Public Use
  Company Number: US-ROCHE-2061404

PATIENT
  Sex: Female

DRUGS (11)
  1. SUCRALFATE. [Concomitant]
     Active Substance: SUCRALFATE
  2. OMEPRAZOLE. [Concomitant]
     Active Substance: OMEPRAZOLE
  3. PROCHLORPERAZINE. [Concomitant]
     Active Substance: PROCHLORPERAZINE
  4. LEVOTHYROXINE SODIUM. [Concomitant]
     Active Substance: LEVOTHYROXINE SODIUM
  5. MONTELUKAST SODIUM. [Concomitant]
     Active Substance: MONTELUKAST SODIUM
  6. PROMACTA [Concomitant]
     Active Substance: ELTROMBOPAG OLAMINE
  7. IMBRUVICA [Concomitant]
     Active Substance: IBRUTINIB
  8. PREDNISONE. [Concomitant]
     Active Substance: PREDNISONE
  9. ZOFRAN [Concomitant]
     Active Substance: ONDANSETRON HYDROCHLORIDE
  10. RITUXAN [Suspect]
     Active Substance: RITUXIMAB
     Indication: PRODUCT USED FOR UNKNOWN INDICATION
     Route: 065
  11. CARAFATE [Concomitant]
     Active Substance: SUCRALFATE

REACTIONS (1)
  - Gastrointestinal haemorrhage [Unknown]
